FAERS Safety Report 14567879 (Version 1)
Quarter: 2018Q1

REPORT INFORMATION
  Report Type: Spontaneous
  Country: US (occurrence: US)
  Receive Date: 20180223
  Receipt Date: 20180223
  Transmission Date: 20180509
  Serious: No
  Sender: FDA-Public Use
  Company Number: US-FERRINGPH-2017FE03607

PATIENT
  Sex: Female
  Weight: 94.97 kg

DRUGS (1)
  1. DESMOPRESSIN [Suspect]
     Active Substance: DESMOPRESSIN
     Indication: BLADDER DISORDER
     Dosage: 10 MCG/0.1 ML, 3 SPRAYS IN EACH NOSTRIL EVERY NIGHT
     Route: 045
     Dates: start: 2017

REACTIONS (2)
  - Product packaging quantity issue [Unknown]
  - Off label use [Not Recovered/Not Resolved]

NARRATIVE: CASE EVENT DATE: 2017
